FAERS Safety Report 8949930 (Version 3)
Quarter: 2012Q4

REPORT INFORMATION
  Report Type: Report from Study
  Country: US (occurrence: US)
  Receive Date: 20121205
  Receipt Date: 20121213
  Transmission Date: 20130627
  Serious: Yes (Hospitalization)
  Sender: FDA-Public Use
  Company Number: US-009507513-1212USA001486

PATIENT
  Age: 45 Year
  Sex: Male

DRUGS (19)
  1. BOCEPREVIR [Suspect]
     Dosage: 800 mg, tid
     Route: 048
     Dates: start: 20120626, end: 20121128
  2. PEGINTERFERON ALFA-2B [Suspect]
     Dosage: 150 Microgram, qw
     Route: 058
     Dates: start: 20120530, end: 20121123
  3. PEGINTERFERON ALFA-2B [Suspect]
     Dosage: UNK
  4. RIBAVIRIN [Suspect]
     Dosage: 600 mg, bid
     Route: 048
     Dates: start: 20120530, end: 20121128
  5. AZITHROMYCIN [Concomitant]
     Dosage: UNK
     Dates: start: 20121026
  6. VALIUM [Concomitant]
     Dosage: UNK
     Dates: start: 20090807
  7. REMERON [Concomitant]
     Dosage: UNK
     Dates: start: 20090518
  8. ZANTAC [Concomitant]
     Dosage: UNK
     Dates: start: 20111212
  9. LAC HYDRIN [Concomitant]
     Dosage: UNK
     Dates: start: 20110208
  10. AMLACTIN [Concomitant]
     Dosage: UNK
     Dates: start: 20090409
  11. PROVENTIL [Concomitant]
     Dosage: UNK
     Dates: start: 20081114
  12. PROVENTIL INHALER [Concomitant]
     Dosage: UNK
     Dates: start: 20090927
  13. NICODERM CQ [Concomitant]
     Dosage: UNK
     Dates: start: 20120530
  14. PERCOCET [Concomitant]
     Dosage: UNK
     Dates: start: 20120530
  15. ATRIPLA [Concomitant]
     Dosage: UNK
     Dates: start: 20070706
  16. HYCODAN (HYDROCODONE BITARTRATE) [Concomitant]
     Dosage: UNK
     Dates: start: 20120608
  17. LOMOTIL [Concomitant]
     Dosage: UNK
     Dates: start: 20120710
  18. IBUPROFEN [Concomitant]
     Dosage: 800 mg, tid
     Route: 048
     Dates: start: 20120710
  19. PHENERGAN (PROMETHAZINE HYDROCHLORIDE) [Concomitant]
     Dosage: 25 mg, qd
     Dates: start: 20120702

REACTIONS (1)
  - Psychotic disorder [Recovered/Resolved]
